FAERS Safety Report 11149678 (Version 3)
Quarter: 2015Q3

REPORT INFORMATION
  Report Type: Spontaneous
  Country: DE (occurrence: DE)
  Receive Date: 20150529
  Receipt Date: 20150805
  Transmission Date: 20151125
  Serious: Yes (Hospitalization, Other)
  Sender: FDA-Public Use
  Company Number: DE-BAXTER-2015BAX028250

PATIENT
  Age: 0 Day
  Sex: Male

DRUGS (8)
  1. BLEOMYCIN [Suspect]
     Active Substance: BLEOMYCIN SULFATE
     Indication: EXPOSURE VIA FATHER
     Dosage: 7 COURSES
     Route: 065
     Dates: end: 201207
  2. ENDOXAN 1G [Suspect]
     Active Substance: CYCLOPHOSPHAMIDE
     Indication: EXPOSURE VIA FATHER
     Dosage: 7 COURSES
     Route: 065
     Dates: end: 201207
  3. ADRIAMYCIN [Suspect]
     Active Substance: DOXORUBICIN HYDROCHLORIDE
     Indication: EXPOSURE VIA FATHER
     Dosage: 7 COURSES
     Route: 065
     Dates: end: 201207
  4. ETOPOSID [Suspect]
     Active Substance: ETOPOSIDE
     Indication: EXPOSURE VIA FATHER
     Dosage: 7 COURSES
     Route: 065
     Dates: end: 201207
  5. NATULAN [Suspect]
     Active Substance: PROCARBAZINE HYDROCHLORIDE
     Indication: EXPOSURE VIA FATHER
     Dosage: 7 COURSES
     Route: 065
     Dates: end: 201207
  6. VINCRSITIN [Suspect]
     Active Substance: VINCRISTINE
     Indication: EXPOSURE VIA FATHER
     Dosage: 7 COURSES
     Route: 065
     Dates: end: 201207
  7. PREDNISOLON [Suspect]
     Active Substance: PREDNISOLONE
     Indication: EXPOSURE VIA FATHER
     Dosage: 7 COURSES
     Route: 065
     Dates: end: 201207
  8. DOXORUBICIN [Suspect]
     Active Substance: DOXORUBICIN
     Indication: EXPOSURE VIA FATHER
     Dosage: 7 COURSES
     Route: 065
     Dates: end: 201207

REACTIONS (2)
  - Heart disease congenital [Not Recovered/Not Resolved]
  - Paternal drugs affecting foetus [Not Recovered/Not Resolved]

NARRATIVE: CASE EVENT DATE: 20150220
